FAERS Safety Report 4854776-X (Version None)
Quarter: 2005Q4

REPORT INFORMATION
  Report Type: 
  Country: None (occurrence: None)
  Receive Date: 20051214
  Receipt Date: 20051214
  Transmission Date: 20060501
  Serious: Yes (Hospitalization)
  Sender: FDA-Public Use
  Company Number: None

PATIENT
  Sex: Female
  Weight: 49.8957 kg

DRUGS (2)
  1. NEURONTIN [Suspect]
     Indication: MIGRAINE PROPHYLAXIS
     Dosage: 300 TID OR 900 HS TOOK 600 MG   PO
     Route: 048
     Dates: start: 20051128, end: 20051213
  2. DIFLUCAN [Suspect]
     Indication: VAGINAL CANDIDIASIS
     Dosage: 150MG  ONCE X1 DAY PO
     Route: 048
     Dates: start: 20040402, end: 20040402

REACTIONS (10)
  - BURNING SENSATION MUCOSAL [None]
  - EYE IRRITATION [None]
  - GENITAL PRURITUS FEMALE [None]
  - LIP BLISTER [None]
  - MUCOUS MEMBRANE DISORDER [None]
  - NASAL DISCOMFORT [None]
  - ORAL PRURITUS [None]
  - PRURITUS [None]
  - RASH PRURITIC [None]
  - VAGINAL BURNING SENSATION [None]
